FAERS Safety Report 7051856-8 (Version None)
Quarter: 2010Q4

REPORT INFORMATION
  Report Type: 
  Country: None (occurrence: None)
  Receive Date: 20101019
  Receipt Date: 20101013
  Transmission Date: 20110411
  Serious: Yes (Hospitalization)
  Sender: FDA-Public Use
  Company Number: FR-BRACCO-000398

PATIENT
  Sex: Male

DRUGS (7)
  1. IOPAMIDOL [Suspect]
     Indication: CHEST PAIN
     Route: 042
     Dates: start: 20100315, end: 20100315
  2. IOPAMIDOL [Suspect]
     Indication: CORONARY ARTERY OCCLUSION
     Route: 042
     Dates: start: 20100315, end: 20100315
  3. IOPAMIDOL [Suspect]
     Indication: ARTERIOGRAM CORONARY
     Route: 042
     Dates: start: 20100315, end: 20100315
  4. KARDEGIC [Concomitant]
     Dosage: 160MG FOR 1 MONTH THEN 75MG
     Route: 048
  5. PLAVIX [Concomitant]
     Dosage: FOR 1 MONTH
     Route: 048
  6. NICOPATCH [Concomitant]
  7. HEPARIN CALCIUM [Suspect]
     Indication: X-RAY
     Route: 042
     Dates: start: 20100315, end: 20100315

REACTIONS (1)
  - EMBOLISM ARTERIAL [None]
